FAERS Safety Report 5057015-2 (Version None)
Quarter: 2006Q2

REPORT INFORMATION
  Report Type: 
  Country: None (occurrence: None)
  Receive Date: 20060622
  Receipt Date: 20051228
  Transmission Date: 20061013
  Serious: Yes (Other)
  Sender: FDA-Public Use
  Company Number: US-JNJFOC-20051205964

PATIENT
  Age: 19 Year
  Sex: Male

DRUGS (1)
  1. DURAGESIC-100 [Suspect]
     Indication: DRUG USE FOR UNKNOWN INDICATION
     Dosage: 100 UG/HR
     Dates: start: 20051201

REACTIONS (3)
  - DRUG ABUSER [None]
  - LOSS OF CONSCIOUSNESS [None]
  - OVERDOSE [None]
